FAERS Safety Report 17496118 (Version 1)
Quarter: 2020Q1

REPORT INFORMATION
  Report Type: Spontaneous
  Country: CH (occurrence: CH)
  Receive Date: 20200303
  Receipt Date: 20200303
  Transmission Date: 20200409
  Serious: Yes (Congenital Anomaly)
  Sender: FDA-Public Use
  Company Number: CH-ALLERGAN-2009602US

PATIENT

DRUGS (1)
  1. BOTULINUM TOXIN TYPE A UNK [Suspect]
     Active Substance: BOTULINUM TOXIN TYPE A
     Indication: EXPOSURE DURING PREGNANCY
     Dosage: UNK, SINGLE
     Route: 064

REACTIONS (2)
  - Pregnancy [Unknown]
  - Renal hypoplasia [Unknown]
